FAERS Safety Report 18866506 (Version 3)
Quarter: 2023Q4

REPORT INFORMATION
  Report Type: Spontaneous
  Country: DE (occurrence: DE)
  Receive Date: 20210208
  Receipt Date: 20231201
  Transmission Date: 20240110
  Serious: Yes (Death, Other)
  Sender: FDA-Public Use
  Company Number: DE-GILEAD-2021-0516195

PATIENT
  Age: 59 Year
  Sex: Male

DRUGS (14)
  1. YESCARTA [Suspect]
     Active Substance: AXICABTAGENE CILOLEUCEL
     Indication: Diffuse large B-cell lymphoma refractory
     Route: 065
  2. AMBISOME [Suspect]
     Active Substance: AMPHOTERICIN B
     Indication: Candida infection
     Route: 065
  3. AMBISOME [Suspect]
     Active Substance: AMPHOTERICIN B
     Indication: Escherichia sepsis
  4. FLUDARABINE [Concomitant]
     Active Substance: FLUDARABINE PHOSPHATE
     Indication: Bone marrow conditioning regimen
  5. CYCLOPHOSPHAMIDE [Concomitant]
     Active Substance: CYCLOPHOSPHAMIDE
     Indication: Bone marrow conditioning regimen
  6. PIPERACILLIN AND TAZOBACTAM [Concomitant]
     Active Substance: PIPERACILLIN SODIUM\TAZOBACTAM SODIUM
  7. ACYCLOVIR [Concomitant]
     Active Substance: ACYCLOVIR
  8. SULFAMETHOXAZOLE\TRIMETHOPRIM [Concomitant]
     Active Substance: SULFAMETHOXAZOLE\TRIMETHOPRIM
  9. POSACONAZOLE [Concomitant]
     Active Substance: POSACONAZOLE
  10. MEROPENEM [Concomitant]
     Active Substance: MEROPENEM
  11. LINEZOLID [Concomitant]
     Active Substance: LINEZOLID
  12. MICAFUNGIN [Concomitant]
     Active Substance: MICAFUNGIN SODIUM
  13. VANCOMYCIN [Concomitant]
     Active Substance: VANCOMYCIN
  14. AMIKACIN [Concomitant]
     Active Substance: AMIKACIN

REACTIONS (8)
  - Immune reconstitution inflammatory syndrome [Fatal]
  - Pneumonia fungal [Fatal]
  - Septic shock [Fatal]
  - Drug ineffective [Fatal]
  - Cytokine release syndrome [Recovering/Resolving]
  - Immune effector cell-associated neurotoxicity syndrome [Recovering/Resolving]
  - Bone marrow failure [Recovering/Resolving]
  - Neutropenia [Recovering/Resolving]
